FAERS Safety Report 8287570-0 (Version None)
Quarter: 2012Q2

REPORT INFORMATION
  Report Type: 
  Country: None (occurrence: None)
  Receive Date: 20120416
  Receipt Date: 20120405
  Transmission Date: 20120825
  Serious: Yes (Other)
  Sender: FDA-Public Use
  Company Number: PHFR2012GB001360

PATIENT
  Sex: Female

DRUGS (7)
  1. AMISULPRIDE [Concomitant]
     Indication: SCHIZOPHRENIA
     Dosage: 400 MG, BID
     Route: 048
  2. OMEPRAZOLE [Concomitant]
     Indication: GASTROOESOPHAGEAL REFLUX DISEASE
     Dosage: 20 MG, DAILY
     Route: 048
  3. CLOZARIL [Suspect]
     Indication: SCHIZOPHRENIA
     Dosage: 12.5 MG, DAILY
     Route: 048
     Dates: start: 20120209, end: 20120214
  4. SOLIFENACIN SUCCINATE [Concomitant]
     Indication: URINARY INCONTINENCE
     Dosage: 5 MG, QD
     Route: 048
  5. LAXIDO SACHET [Concomitant]
     Indication: CONSTIPATION
     Dosage: 2 DF, BID
     Route: 048
  6. BENDROFLUMETHIAZIDE [Concomitant]
     Indication: HYPERTENSION
     Dosage: 2.5 MG, QD
     Route: 048
  7. RANITIDINE [Concomitant]
     Indication: GASTROOESOPHAGEAL REFLUX DISEASE
     Dosage: 150 MG, BID

REACTIONS (5)
  - BLOOD CREATINE PHOSPHOKINASE INCREASED [None]
  - MYOCARDITIS [None]
  - PYREXIA [None]
  - CARDIAC DISORDER [None]
  - TROPONIN INCREASED [None]
